FAERS Safety Report 6719942-7 (Version None)
Quarter: 2010Q2

REPORT INFORMATION
  Report Type: 
  Country: None (occurrence: None)
  Receive Date: 20100511
  Receipt Date: 20100511
  Transmission Date: 20101027
  Serious: No
  Sender: FDA-Public Use
  Company Number: None

PATIENT
  Age: 39 Year
  Sex: Male
  Weight: 72.5755 kg

DRUGS (5)
  1. CHILDREN'S MOTRIN [Suspect]
  2. CHILDREN'S MOTRIN [Suspect]
  3. CHILDREN'S MOTRIN [Suspect]
  4. CHILDREN'S MOTRIN [Suspect]
  5. CHILDREN BENADRYL [Suspect]

REACTIONS (5)
  - ABDOMINAL PAIN [None]
  - FEAR [None]
  - MOOD ALTERED [None]
  - POOR QUALITY DRUG ADMINISTERED [None]
  - PRODUCT QUALITY ISSUE [None]
